FAERS Safety Report 5349583-8 (Version None)
Quarter: 2007Q2

REPORT INFORMATION
  Report Type: 
  Country: None (occurrence: None)
  Receive Date: 20070607
  Receipt Date: 20070529
  Transmission Date: 20071010
  Serious: Yes (Other)
  Sender: FDA-Public Use
  Company Number: US-ELI_LILLY_AND_COMPANY-US200705006967

PATIENT
  Age: 67 Year
  Sex: Female

DRUGS (1)
  1. FORTEO [Suspect]
     Indication: OSTEOPOROSIS
     Dosage: UNK, UNK
     Dates: start: 20060101

REACTIONS (10)
  - DIZZINESS [None]
  - FLUSHING [None]
  - HYPERSENSITIVITY [None]
  - MUSCLE SPASMS [None]
  - OEDEMA PERIPHERAL [None]
  - PAIN [None]
  - PALPITATIONS [None]
  - STRESS FRACTURE [None]
  - VULVOVAGINAL PRURITUS [None]
  - WEIGHT INCREASED [None]
